FAERS Safety Report 9940915 (Version 1)
Quarter: 2014Q1

REPORT INFORMATION
  Report Type: Spontaneous
  Country: CN (occurrence: CN)
  Receive Date: 20140303
  Receipt Date: 20140303
  Transmission Date: 20141002
  Serious: Yes (Other)
  Sender: FDA-Public Use
  Company Number: CN-JNJFOC-20140300606

PATIENT
  Sex: Male
  Weight: 2 kg

DRUGS (1)
  1. SPORANOX [Suspect]
     Indication: VAGINAL INFECTION
     Route: 064
     Dates: start: 20120209, end: 20120212

REACTIONS (2)
  - Premature baby [Not Recovered/Not Resolved]
  - Foetal exposure during pregnancy [Recovered/Resolved]
